FAERS Safety Report 6836048-7 (Version None)
Quarter: 2010Q3

REPORT INFORMATION
  Report Type: 
  Country: None (occurrence: None)
  Receive Date: 20100713
  Receipt Date: 20100705
  Transmission Date: 20110219
  Serious: Yes (Hospitalization)
  Sender: FDA-Public Use
  Company Number: B0665015A

PATIENT
  Age: 29 Year
  Sex: Female

DRUGS (1)
  1. PROPAFENONE HCL [Suspect]
     Indication: TACHYCARDIA
     Dosage: 150MG THREE TIMES PER DAY
     Route: 048

REACTIONS (13)
  - ACCIDENTAL OVERDOSE [None]
  - ASTHENIA [None]
  - ATRIAL TACHYCARDIA [None]
  - DRUG TOXICITY [None]
  - ELECTROCARDIOGRAM CHANGE [None]
  - ELECTROCARDIOGRAM PR PROLONGATION [None]
  - ELECTROCARDIOGRAM QRS COMPLEX PROLONGED [None]
  - FEELING ABNORMAL [None]
  - MALAISE [None]
  - NUCHAL RIGIDITY [None]
  - OPISTHOTONUS [None]
  - SPEECH DISORDER [None]
  - TONGUE DISORDER [None]
